FAERS Safety Report 12134038 (Version 1)
Quarter: 2016Q1

REPORT INFORMATION
  Report Type: Spontaneous
  Country: US (occurrence: US)
  Receive Date: 20160301
  Receipt Date: 20160301
  Transmission Date: 20160526
  Serious: Yes (Hospitalization, Other)
  Sender: FDA-Public Use
  Company Number: US-PHARSAFER ASSOCIATES LTD-RAP-0137-2014

PATIENT
  Age: 27 Year
  Sex: Female
  Weight: 74.83 kg

DRUGS (1)
  1. PROCYSBI DELAYED-RELEASE [Suspect]
     Active Substance: CYSTEAMINE BITARTRATE
     Indication: CYSTINOSIS
     Dosage: 700 MG, BID
     Route: 048
     Dates: start: 201403

REACTIONS (3)
  - Disease progression [Unknown]
  - Renal transplant [Unknown]
  - Fluid replacement [Unknown]

NARRATIVE: CASE EVENT DATE: 201405
